FAERS Safety Report 12522484 (Version 5)
Quarter: 2016Q4

REPORT INFORMATION
  Report Type: Report from Study
  Country: BR (occurrence: BR)
  Receive Date: 20160701
  Receipt Date: 20161201
  Transmission Date: 20170207
  Serious: Yes (Other)
  Sender: FDA-Public Use
  Company Number: PHHY2016BR089985

PATIENT
  Age: 61 Year
  Sex: Female
  Weight: 66 kg

DRUGS (4)
  1. SANDOSTATIN LAR DEPOT [Suspect]
     Active Substance: OCTREOTIDE ACETATE
     Indication: HEPATIC CANCER
  2. AEROLIN [Concomitant]
     Active Substance: ALBUTEROL
     Indication: PRODUCT USED FOR UNKNOWN INDICATION
     Route: 065
  3. SANDOSTATIN LAR DEPOT [Suspect]
     Active Substance: OCTREOTIDE ACETATE
     Indication: GASTROINTESTINAL CARCINOMA
  4. SANDOSTATIN LAR DEPOT [Suspect]
     Active Substance: OCTREOTIDE ACETATE
     Indication: NEUROENDOCRINE TUMOUR
     Dosage: 30 MG, QMO
     Route: 030
     Dates: start: 201012

REACTIONS (21)
  - Cardiovascular disorder [Unknown]
  - Abdominal distension [Unknown]
  - Musculoskeletal stiffness [Unknown]
  - Melanoderma [Recovered/Resolved]
  - Head discomfort [Unknown]
  - Asthmatic crisis [Recovering/Resolving]
  - Feeling abnormal [Unknown]
  - Feeding disorder [Recovering/Resolving]
  - Arthralgia [Recovering/Resolving]
  - Hypersensitivity [Unknown]
  - Feeling cold [Recovering/Resolving]
  - Anaemia [Unknown]
  - Alopecia [Recovering/Resolving]
  - Flavivirus infection [Recovering/Resolving]
  - Asthma [Unknown]
  - Malaise [Unknown]
  - Erythema [Not Recovered/Not Resolved]
  - Abdominal discomfort [Unknown]
  - Asthenia [Not Recovered/Not Resolved]
  - Malignant neoplasm progression [Unknown]
  - Sluggishness [Unknown]

NARRATIVE: CASE EVENT DATE: 201609
